FAERS Safety Report 19254060 (Version 2)
Quarter: 2021Q3

REPORT INFORMATION
  Report Type: Other
  Country: US (occurrence: US)
  Receive Date: 20210513
  Receipt Date: 20210921
  Transmission Date: 20211014
  Serious: No
  Sender: FDA-Public Use
  Company Number: US-NEUROCRINE BIOSCIENCES INC.-2021NBI02219

PATIENT

DRUGS (7)
  1. CLONAZEPAM. [Concomitant]
     Active Substance: CLONAZEPAM
     Indication: ANXIETY
     Dosage: 0.5 MILLIGRAM AT BEDTIME
     Route: 048
  2. PAROXETINE. [Concomitant]
     Active Substance: PAROXETINE
     Dosage: 20 MILLIGRAM, QD
  3. INGREZZA [Suspect]
     Active Substance: VALBENAZINE
     Dosage: 40 MILLIGRAM DAILY
     Route: 048
     Dates: start: 20210409, end: 20210824
  4. QUETIAPINE. [Concomitant]
     Active Substance: QUETIAPINE
     Indication: SCHIZOPHRENIA
     Dosage: 500 MILLIGRAM IN EVENING
     Route: 048
  5. ARISTADA INITIO [Concomitant]
     Active Substance: ARIPIPRAZOLE LAUROXIL
     Dosage: 441(UNIT UNSPECIFIED(QMONTHTLY
  6. INGREZZA [Suspect]
     Active Substance: VALBENAZINE
     Indication: TARDIVE DYSKINESIA
     Dosage: 80 MILLIGRAM DAILY
     Route: 048
     Dates: start: 20210402, end: 202104
  7. LAMOTRIGINE. [Concomitant]
     Active Substance: LAMOTRIGINE
     Indication: BIPOLAR DISORDER
     Dosage: 100 MG/25MG,EVENING/BEDTIME
     Route: 048

REACTIONS (5)
  - Somnolence [Recovered/Resolved]
  - Dysarthria [Recovered/Resolved]
  - Speech disorder [Unknown]
  - Balance disorder [Recovered/Resolved]
  - Lethargy [Unknown]

NARRATIVE: CASE EVENT DATE: 202104
